FAERS Safety Report 5376574-3 (Version None)
Quarter: 2007Q2

REPORT INFORMATION
  Report Type: 
  Country: None (occurrence: None)
  Receive Date: 20070629
  Receipt Date: 20070613
  Transmission Date: 20071010
  Serious: Yes (Hospitalization)
  Sender: FDA-Public Use
  Company Number: 2007SP012488

PATIENT
  Age: 79 Year
  Sex: Female

DRUGS (4)
  1. BETAMETHASONE SODIUM PHOSPHATE [Suspect]
     Indication: KERATITIS
  2. PREDNISOLONE [Concomitant]
  3. DEXAMETHASONE SODIUM [Concomitant]
  4. PHOSPHATE [Concomitant]

REACTIONS (8)
  - CORNEAL OPACITY [None]
  - CORNEAL PERFORATION [None]
  - CORNEAL THINNING [None]
  - DISEASE RECURRENCE [None]
  - HYPHAEMA [None]
  - KERATITIS BACTERIAL [None]
  - KERATITIS HERPETIC [None]
  - ULCERATIVE KERATITIS [None]
